FAERS Safety Report 4491065-X (Version None)
Quarter: 2004Q4

REPORT INFORMATION
  Report Type: 
  Country: None (occurrence: None)
  Receive Date: 20041027
  Receipt Date: 20041012
  Transmission Date: 20050328
  Serious: Yes (Hospitalization)
  Sender: FDA-Public Use
  Company Number: 2004-10-0757

PATIENT
  Age: 5 Year
  Sex: Female
  Weight: 22 kg

DRUGS (2)
  1. CLARITIN-D [Suspect]
     Indication: UPPER RESPIRATORY TRACT CONGESTION
     Dosage: 5 ML/BID ORAL
     Route: 048
     Dates: start: 20040928, end: 20040930
  2. BACTRIM PEDIATRIC [Concomitant]

REACTIONS (6)
  - EXCITABILITY [None]
  - HYPOTHERMIA [None]
  - MEDICATION ERROR [None]
  - PALLOR [None]
  - TACHYCARDIA [None]
  - VOMITING [None]
